FAERS Safety Report 6023879-9 (Version None)
Quarter: 2008Q4

REPORT INFORMATION
  Report Type: 
  Country: None (occurrence: None)
  Receive Date: 20081230
  Receipt Date: 20081223
  Transmission Date: 20090506
  Serious: Yes (Other)
  Sender: FDA-Public Use
  Company Number: US-PFIZER INC-2008159377

PATIENT
  Sex: Female
  Weight: 44.452 kg

DRUGS (2)
  1. CELEBREX [Suspect]
     Indication: ARTHRITIS
     Dosage: FREQUENCY: PRN,
     Dates: start: 20080301, end: 20080501
  2. ALL OTHER THERAPEUTIC PRODUCTS [Concomitant]

REACTIONS (1)
  - CONVULSION [None]
